FAERS Safety Report 9462254 (Version 1)
Quarter: 2013Q3

REPORT INFORMATION
  Report Type: Spontaneous
  Country: US (occurrence: US)
  Receive Date: 20130816
  Receipt Date: 20130816
  Transmission Date: 20140515
  Serious: Yes (Hospitalization)
  Sender: FDA-Public Use
  Company Number: US-GLAXOSMITHKLINE-A1037486A

PATIENT
  Age: 40 Year
  Sex: Male

DRUGS (1)
  1. LAMICTAL [Suspect]
     Indication: PRODUCT USED FOR UNKNOWN INDICATION
     Dosage: 18TAB UNKNOWN
     Route: 048

REACTIONS (3)
  - Coma [Unknown]
  - Overdose [Unknown]
  - Drug screen positive [Unknown]
